FAERS Safety Report 5342618-8 (Version None)
Quarter: 2007Q2

REPORT INFORMATION
  Report Type: 
  Country: None (occurrence: None)
  Receive Date: 20070601
  Receipt Date: 20070521
  Transmission Date: 20071010
  Serious: Yes (Hospitalization, Disabling, Other)
  Sender: FDA-Public Use
  Company Number: FR-PFIZER INC-2007032217

PATIENT
  Sex: Male
  Weight: 78 kg

DRUGS (7)
  1. TAHOR [Suspect]
     Indication: HYPERCHOLESTEROLAEMIA
     Route: 048
     Dates: start: 20070115, end: 20070320
  2. CIMETIDINE HCL [Suspect]
     Route: 048
     Dates: start: 20061125, end: 20070320
  3. INIPOMP [Concomitant]
  4. KARDEGIC [Concomitant]
  5. ATACAND [Concomitant]
     Indication: HYPERTENSION
  6. TENSTATEN [Concomitant]
  7. FORLAX [Concomitant]

REACTIONS (5)
  - CERVICAL CORD COMPRESSION [None]
  - HEPATITIS [None]
  - JAUNDICE [None]
  - NEUROLOGICAL SYMPTOM [None]
  - PARAESTHESIA [None]
